FAERS Safety Report 7281029-5 (Version None)
Quarter: 2011Q1

REPORT INFORMATION
  Report Type: 
  Country: None (occurrence: None)
  Receive Date: 20110208
  Receipt Date: 20110131
  Transmission Date: 20110831
  Serious: Yes (Death, Other)
  Sender: FDA-Public Use
  Company Number: CHPA2011US01830

PATIENT
  Age: 38 Year
  Sex: Female

DRUGS (10)
  1. PREGABALIN [Suspect]
     Route: 048
  2. ZOLPIDEM [Suspect]
     Route: 048
  3. DEXTROMETHORPHAN HYDROBROMIDE [Suspect]
     Route: 048
  4. TOPIRAMATE [Suspect]
     Route: 048
  5. DOXYLAMINE [Suspect]
     Route: 048
  6. RIZATRIPTAN BENZOATE [Suspect]
     Route: 048
  7. DULOXETINE [Suspect]
     Route: 048
  8. ACETAMINOPHEN AND HYDROCODONE BITARTRATE [Suspect]
     Route: 048
  9. DIAZEPAM [Suspect]
     Route: 048
  10. BENZODIAZEPINES [Suspect]
     Route: 048

REACTIONS (2)
  - COMPLETED SUICIDE [None]
  - CARDIO-RESPIRATORY ARREST [None]
